FAERS Safety Report 11639753 (Version 29)
Quarter: 2019Q2

REPORT INFORMATION
  Report Type: Report from Study
  Country: CA (occurrence: CA)
  Receive Date: 20151019
  Receipt Date: 20190615
  Transmission Date: 20190711
  Serious: Yes (Hospitalization, Other)
  Sender: FDA-Public Use
  Company Number: PHHY2015CA075468

PATIENT
  Age: 82 Year
  Sex: Male

DRUGS (4)
  1. SANDOSTATIN LAR DEPOT [Suspect]
     Active Substance: OCTREOTIDE ACETATE
     Dosage: 20 MG, QW
     Route: 030
     Dates: start: 201801
  2. SANDOSTATIN LAR DEPOT [Suspect]
     Active Substance: OCTREOTIDE ACETATE
     Dosage: 20 MG, QMO (EVERY 4 WEEKS)
     Route: 030
     Dates: start: 20190121
  3. SANDOSTATIN LAR DEPOT [Suspect]
     Active Substance: OCTREOTIDE ACETATE
     Indication: ANGIODYSPLASIA
     Dosage: 20 MG, QMO (EVERY 4 WEEKS)
     Route: 030
     Dates: start: 20150522, end: 201711
  4. SANDOSTATIN LAR DEPOT [Suspect]
     Active Substance: OCTREOTIDE ACETATE
     Dosage: UNK
     Route: 030
     Dates: start: 20180306

REACTIONS (43)
  - Dyspnoea [Unknown]
  - Abdominal neoplasm [Unknown]
  - Blood pressure decreased [Unknown]
  - Faeces discoloured [Unknown]
  - Inappropriate schedule of product administration [Unknown]
  - Thrombosis [Unknown]
  - Aortic occlusion [Unknown]
  - Product use in unapproved indication [Unknown]
  - Cerebrovascular accident [Recovered/Resolved]
  - Hypopnoea [Unknown]
  - Loss of consciousness [Unknown]
  - Bronchitis [Unknown]
  - Sputum discoloured [Unknown]
  - Feeling hot [Unknown]
  - Dyspnoea exertional [Unknown]
  - Asthenia [Unknown]
  - Dizziness [Unknown]
  - Chills [Unknown]
  - Haemorrhage [Unknown]
  - Anaemia [Recovered/Resolved]
  - Scratch [Unknown]
  - Otorrhoea [Not Recovered/Not Resolved]
  - Heart rate irregular [Unknown]
  - Contusion [Unknown]
  - Musculoskeletal pain [Recovering/Resolving]
  - Fatigue [Unknown]
  - Productive cough [Unknown]
  - Rib fracture [Unknown]
  - Body temperature decreased [Unknown]
  - Pneumonia [Recovered/Resolved]
  - Neoplasm progression [Unknown]
  - Ear infection [Unknown]
  - Abdominal pain [Unknown]
  - Angina pectoris [Recovering/Resolving]
  - Tumour pain [Unknown]
  - Bradycardia [Unknown]
  - Fall [Unknown]
  - Pneumonia [Recovering/Resolving]
  - Chest pain [Not Recovered/Not Resolved]
  - Haemoglobin increased [Unknown]
  - Cough [Unknown]
  - Blood glucose decreased [Unknown]
  - Carpal tunnel syndrome [Recovering/Resolving]

NARRATIVE: CASE EVENT DATE: 20150716
